FAERS Safety Report 7075231-5 (Version None)
Quarter: 2010Q4

REPORT INFORMATION
  Report Type: 
  Country: None (occurrence: None)
  Receive Date: 20101030
  Receipt Date: 20100709
  Transmission Date: 20110411
  Serious: No
  Sender: FDA-Public Use
  Company Number: US-WYE-H16324410

PATIENT
  Age: 15 Year
  Sex: Male
  Weight: 75.82 kg

DRUGS (1)
  1. ALAVERT [Suspect]
     Indication: UPPER-AIRWAY COUGH SYNDROME
     Route: 048
     Dates: start: 20100628, end: 20100702

REACTIONS (1)
  - URTICARIA [None]
